FAERS Safety Report 20201921 (Version 1)
Quarter: 2021Q4

REPORT INFORMATION
  Report Type: Spontaneous
  Country: SE (occurrence: SE)
  Receive Date: 20211217
  Receipt Date: 20211217
  Transmission Date: 20220303
  Serious: Yes (Disabling, Other)
  Sender: FDA-Public Use
  Company Number: None

PATIENT
  Sex: Male

DRUGS (6)
  1. DALBAVANCIN HYDROCHLORIDE [Suspect]
     Active Substance: DALBAVANCIN HYDROCHLORIDE
     Indication: Device related infection
     Dosage: 500 MG, Q WEEK
     Route: 042
     Dates: start: 20211005, end: 20211028
  2. DALBAVANCIN HYDROCHLORIDE [Suspect]
     Active Substance: DALBAVANCIN HYDROCHLORIDE
     Dosage: 1000 MG, Q WEEK
     Route: 042
     Dates: start: 20210928, end: 20210928
  3. DICLOFENAC [Concomitant]
     Active Substance: DICLOFENAC
     Dosage: 50 MG 1 TABLETT 2 GGR/DAY
     Route: 048
     Dates: start: 20210923
  4. OXYCONTIN [Concomitant]
     Active Substance: OXYCODONE HYDROCHLORIDE
     Dosage: 10 MG 1 TABLET DAILY
     Route: 048
     Dates: start: 20210827
  5. TESTOSTERONE [Concomitant]
     Active Substance: TESTOSTERONE
     Dosage: 4 PUMP PRESSURE DAILY
     Route: 003
     Dates: start: 20201222
  6. PRAVIDEL [BROMOCRIPTINE MESILATE] [Concomitant]
     Dosage: 2.5 MG, QD
     Route: 048
     Dates: start: 20210303

REACTIONS (2)
  - Deafness neurosensory [Not Recovered/Not Resolved]
  - Off label use [Unknown]

NARRATIVE: CASE EVENT DATE: 20211004
